FAERS Safety Report 13962674 (Version 1)
Quarter: 2017Q3

REPORT INFORMATION
  Report Type: Spontaneous
  Country: US (occurrence: US)
  Receive Date: 20170913
  Receipt Date: 20170913
  Transmission Date: 20171128
  Serious: No
  Sender: FDA-Public Use
  Company Number: US-009507513-1709USA003798

PATIENT

DRUGS (7)
  1. SPIRONOLACTONE. [Concomitant]
     Active Substance: SPIRONOLACTONE
  2. LACTULOSE. [Concomitant]
     Active Substance: LACTULOSE
  3. ZEPATIER [Suspect]
     Active Substance: ELBASVIR\GRAZOPREVIR
     Indication: HEPATITIS C
     Dosage: 1 DF, QD, 50-100 MG
     Route: 048
     Dates: start: 201708, end: 201708
  4. FUROSEMIDE. [Concomitant]
     Active Substance: FUROSEMIDE
  5. ALPRAZOLAM. [Concomitant]
     Active Substance: ALPRAZOLAM
  6. HYDROCODONE [Concomitant]
     Active Substance: HYDROCODONE
  7. ACETAMINOPHEN. [Concomitant]
     Active Substance: ACETAMINOPHEN

REACTIONS (1)
  - Vomiting [Unknown]
